FAERS Safety Report 7358487-0 (Version None)
Quarter: 2011Q1

REPORT INFORMATION
  Report Type: 
  Country: None (occurrence: None)
  Receive Date: 20110314
  Receipt Date: 20110314
  Transmission Date: 20110831
  Serious: Yes (Hospitalization)
  Sender: FDA-Public Use
  Company Number: None

PATIENT
  Sex: Female
  Weight: 64.6 kg

DRUGS (1)
  1. LAPATINIB [Suspect]
     Indication: BREAST CANCER METASTATIC
     Dosage: 3000 MG QD PO
     Route: 048
     Dates: start: 20110203, end: 20110306

REACTIONS (3)
  - BRAIN MIDLINE SHIFT [None]
  - TUMOUR NECROSIS [None]
  - NEOPLASM MALIGNANT [None]
